FAERS Safety Report 5464960-2 (Version None)
Quarter: 2007Q3

REPORT INFORMATION
  Report Type: 
  Country: None (occurrence: None)
  Receive Date: 20070921
  Receipt Date: 20070913
  Transmission Date: 20080115
  Serious: Yes (Other)
  Sender: FDA-Public Use
  Company Number: US-PFIZER INC-2007077356

PATIENT
  Sex: Male
  Weight: 100 kg

DRUGS (5)
  1. LIPITOR [Suspect]
     Indication: BLOOD CHOLESTEROL INCREASED
  2. PRINIVIL [Concomitant]
  3. SELEGILINE HCL [Concomitant]
  4. EFFEXOR [Concomitant]
  5. REQUIP [Concomitant]

REACTIONS (3)
  - BLOOD GLUCOSE DECREASED [None]
  - FATIGUE [None]
  - PARKINSON'S DISEASE [None]
